FAERS Safety Report 14373186 (Version 1)
Quarter: 2018Q1

REPORT INFORMATION
  Report Type: Spontaneous
  Country: US (occurrence: US)
  Receive Date: 20180110
  Receipt Date: 20180110
  Transmission Date: 20180509
  Serious: No
  Sender: FDA-Public Use
  Company Number: US-LUNDBECK-DKLU2033010

PATIENT
  Sex: Female

DRUGS (1)
  1. NORTHERA [Suspect]
     Active Substance: DROXIDOPA
     Indication: PRODUCT USED FOR UNKNOWN INDICATION
     Route: 048

REACTIONS (7)
  - Dysphagia [Unknown]
  - Syncope [Unknown]
  - Gastrooesophageal reflux disease [Unknown]
  - Dysuria [Unknown]
  - Asthenia [Unknown]
  - Blood pressure fluctuation [Unknown]
  - Nausea [Unknown]
